FAERS Safety Report 20768388 (Version 2)
Quarter: 2022Q4

REPORT INFORMATION
  Report Type: Spontaneous
  Country: IR (occurrence: IR)
  Receive Date: 20220429
  Receipt Date: 20221028
  Transmission Date: 20230112
  Serious: Yes (Death, Other)
  Sender: FDA-Public Use
  Company Number: IR-SUN PHARMACEUTICAL INDUSTRIES LTD-2022R1-334965

PATIENT
  Age: 43 Year
  Sex: Male

DRUGS (4)
  1. AMPHOTERICIN B [Suspect]
     Active Substance: AMPHOTERICIN B
     Indication: Cutaneous mucormycosis
     Dosage: UNK
     Route: 042
  2. VANCOMYCIN HYDROCHLORIDE [Suspect]
     Active Substance: VANCOMYCIN HYDROCHLORIDE
     Indication: Cutaneous mucormycosis
     Dosage: 1 GRAM, BID
     Route: 065
  3. PIPERACILLIN SODIUM\TAZOBACTAM SODIUM [Suspect]
     Active Substance: PIPERACILLIN SODIUM\TAZOBACTAM SODIUM
     Indication: Cutaneous mucormycosis
     Route: 065
  4. IMIPENEM [Suspect]
     Active Substance: IMIPENEM
     Indication: Cutaneous mucormycosis
     Dosage: 500 MILLIGRAM, BID
     Route: 065

REACTIONS (2)
  - Multiple organ dysfunction syndrome [Fatal]
  - Drug ineffective [Fatal]
